FAERS Safety Report 9406840 (Version 3)
Quarter: 2014Q3

REPORT INFORMATION
  Report Type: Spontaneous
  Country: JP (occurrence: JP)
  Receive Date: 20130718
  Receipt Date: 20140923
  Transmission Date: 20150326
  Serious: Yes (Death, Disabling, Other)
  Sender: FDA-Public Use
  Company Number: PHHY2013JP074411

PATIENT
  Age: 62 Year
  Sex: Female

DRUGS (4)
  1. ZOMETA [Suspect]
     Active Substance: ZOLEDRONIC ACID
     Indication: BREAST CANCER
     Dosage: 4 MG, UNK
     Route: 041
     Dates: start: 2006, end: 2011
  2. ANASTROZOLE. [Concomitant]
     Active Substance: ANASTROZOLE
  3. ZOMETA [Suspect]
     Active Substance: ZOLEDRONIC ACID
     Indication: METASTASES TO BONE
  4. AREDIA [Suspect]
     Active Substance: PAMIDRONATE DISODIUM
     Indication: METASTASES TO BONE
     Route: 041
     Dates: start: 2002

REACTIONS (14)
  - Malignant neoplasm progression [Fatal]
  - Osteonecrosis of jaw [Unknown]
  - Fall [Unknown]
  - Hepatic failure [Fatal]
  - Abasia [Unknown]
  - Hepatic lesion [Unknown]
  - Bone disorder [Unknown]
  - Contusion [Unknown]
  - Atypical femur fracture [Not Recovered/Not Resolved]
  - Bone lesion [Unknown]
  - Pain [Unknown]
  - Metastases to liver [Unknown]
  - Metastases to bone [Unknown]
  - Deformity [Unknown]

NARRATIVE: CASE EVENT DATE: 2011
